FAERS Safety Report 8612876-2 (Version None)
Quarter: 2012Q3

REPORT INFORMATION
  Report Type: 
  Country: None (occurrence: None)
  Receive Date: 20120822
  Receipt Date: 20110930
  Transmission Date: 20120928
  Serious: No
  Sender: FDA-Public Use
  Company Number: US-ASTRAZENECA-2011SE45291

PATIENT
  Age: 67 Year
  Sex: Male

DRUGS (1)
  1. SYMBICORT [Suspect]
     Dosage: ONCE A DAY INSTEAD OF TWICE A DAY
     Route: 055

REACTIONS (4)
  - CHRONIC OBSTRUCTIVE PULMONARY DISEASE [None]
  - DYSPNOEA [None]
  - INAPPROPRIATE SCHEDULE OF DRUG ADMINISTRATION [None]
  - DRUG DOSE OMISSION [None]
